FAERS Safety Report 19882018 (Version 1)
Quarter: 2021Q3

REPORT INFORMATION
  Report Type: Spontaneous
  Country: FR (occurrence: FR)
  Receive Date: 20210924
  Receipt Date: 20210924
  Transmission Date: 20211014
  Serious: Yes (Other)
  Sender: FDA-Public Use
  Company Number: FR-AVERITAS PHARMA, INC.-2021-268975

PATIENT
  Age: 35 Year
  Sex: Female
  Weight: 88 kg

DRUGS (1)
  1. QUTENZA [Suspect]
     Active Substance: CAPSAICIN
     Indication: PRODUCT USED FOR UNKNOWN INDICATION
     Dosage: 1 DOSAGE FORM
     Route: 003
     Dates: start: 20210708, end: 20210709

REACTIONS (2)
  - Burns second degree [Recovered/Resolved with Sequelae]
  - Burns third degree [Recovered/Resolved with Sequelae]

NARRATIVE: CASE EVENT DATE: 20210708
